FAERS Safety Report 19024434 (Version 2)
Quarter: 2021Q2

REPORT INFORMATION
  Report Type: Report from Study
  Country: US (occurrence: US)
  Receive Date: 20210317
  Receipt Date: 20210406
  Transmission Date: 20210717
  Serious: No
  Sender: FDA-Public Use
  Company Number: US-BRISTOL-MYERS SQUIBB COMPANY-BMS-2021-023631

PATIENT
  Age: 24 Year
  Sex: Female
  Weight: 88.2 kg

DRUGS (2)
  1. PLACEBO [Suspect]
     Active Substance: UNSPECIFIED INGREDIENT
     Indication: TYPE 1 DIABETES MELLITUS
     Dosage: 10MG/KG MAX 1000MG, MONTHLYX7
     Route: 042
     Dates: start: 201308, end: 201401
  2. BLINDED ABATACEPT [Suspect]
     Active Substance: ABATACEPT
     Indication: TYPE 1 DIABETES MELLITUS
     Dosage: 10MG/KG MAX 1000MG, MONTHLYX7
     Route: 042
     Dates: start: 201308, end: 201401

REACTIONS (1)
  - No adverse event [Unknown]

NARRATIVE: CASE EVENT DATE: 20140710
